FAERS Safety Report 13056500 (Version 1)
Quarter: 2016Q4

REPORT INFORMATION
  Report Type: Spontaneous
  Country: US (occurrence: US)
  Receive Date: 20161222
  Receipt Date: 20161222
  Transmission Date: 20170207
  Serious: Yes (Other)
  Sender: FDA-Public Use
  Company Number: US-PFIZER INC-2016531937

PATIENT
  Age: 55 Year
  Sex: Female

DRUGS (4)
  1. METHOTREXATE SODIUM. [Suspect]
     Active Substance: METHOTREXATE SODIUM
     Indication: RHEUMATOID ARTHRITIS
     Dosage: 7.5 MG, WEEKLY (CONSISTED OF 2.5 MG EVERY 12 HOURS FOR THREE DOSES)
  2. AMITRIPTYLINE [Concomitant]
     Active Substance: AMITRIPTYLINE
     Dosage: 25 MG, DAILY
  3. SALSALATE. [Concomitant]
     Active Substance: SALSALATE
     Dosage: 1500 MG, 2X/DAY
  4. SUCRALFATE. [Concomitant]
     Active Substance: SUCRALFATE
     Dosage: 3 MG, DAILY

REACTIONS (4)
  - Pneumonia staphylococcal [Recovering/Resolving]
  - Pancytopenia [Recovered/Resolved]
  - Hepatotoxicity [Recovering/Resolving]
  - Bone marrow toxicity [Recovering/Resolving]
